FAERS Safety Report 13992956 (Version 2)
Quarter: 2017Q4

REPORT INFORMATION
  Report Type: Spontaneous
  Country: GB (occurrence: GB)
  Receive Date: 20170920
  Receipt Date: 20171006
  Transmission Date: 20180321
  Serious: Yes (Other)
  Sender: FDA-Public Use
  Company Number: GB-AMGEN-GBRSP2017140179

PATIENT
  Age: 76 Year
  Sex: Female

DRUGS (1)
  1. PROLIA [Suspect]
     Active Substance: DENOSUMAB
     Indication: OSTEOPOROSIS
     Dosage: UNK UNK, Q6MO
     Route: 065
     Dates: start: 20170314

REACTIONS (11)
  - Sciatica [Not Recovered/Not Resolved]
  - Limb discomfort [Recovering/Resolving]
  - Confusional state [Recovering/Resolving]
  - Cyst [Unknown]
  - Impaired healing [Not Recovered/Not Resolved]
  - Urinary incontinence [Recovering/Resolving]
  - Bone pain [Recovering/Resolving]
  - Urinary tract infection [Unknown]
  - Arthropathy [Unknown]
  - Feeling abnormal [Unknown]
  - Dyspnoea [Recovering/Resolving]

NARRATIVE: CASE EVENT DATE: 2017
